FAERS Safety Report 5097809-0 (Version None)
Quarter: 2006Q3

REPORT INFORMATION
  Report Type: 
  Country: None (occurrence: None)
  Receive Date: 20060731
  Receipt Date: 20060222
  Transmission Date: 20061208
  Serious: Yes (Other)
  Sender: FDA-Public Use
  Company Number: 222496

PATIENT
  Age: 54 Year
  Sex: Female

DRUGS (10)
  1. HERCEPTIN [Suspect]
     Indication: INFLAMMATORY CARCINOMA OF THE BREAST
     Dosage: 1/WEEK
     Dates: start: 20050201
  2. ARIMIDEX [Concomitant]
  3. SALINE SPRAY (SODIUM CHLORIDE) [Concomitant]
  4. VASELINE (PETROLATUM, WHITE) [Concomitant]
  5. AQUAPHOR (CERESIN, MINERAL OIL, PETROLATUM, WOOL ALCOHOL) [Concomitant]
  6. ANTIBIOTIC OINTMENT (UNK INGREDIENTS) [Concomitant]
  7. PREDNISONE TAB [Concomitant]
  8. ANTACID NOS [Concomitant]
  9. NEXIUM [Concomitant]
  10. PREVACID [Concomitant]

REACTIONS (1)
  - METASTASIS [None]
